FAERS Safety Report 5140863-8 (Version None)
Quarter: 2006Q4

REPORT INFORMATION
  Report Type: 
  Country: None (occurrence: None)
  Receive Date: 20061025
  Receipt Date: 20061011
  Transmission Date: 20070319
  Serious: Yes (Hospitalization)
  Sender: FDA-Public Use
  Company Number: 2006085036

PATIENT
  Age: 43 Year
  Sex: Male
  Weight: 85.2762 kg

DRUGS (1)
  1. BEXTRA [Suspect]
     Indication: ARTHRITIS
     Dosage: 10MG AND/OR 20 MG (1 OR 2 TIMES PER DAY), ORAL
     Route: 048
     Dates: start: 20030101

REACTIONS (10)
  - ACUTE MYOCARDIAL INFARCTION [None]
  - AGITATION [None]
  - ANGINA UNSTABLE [None]
  - ANXIETY [None]
  - ARTERIAL OCCLUSIVE DISEASE [None]
  - CARDIAC FAILURE CONGESTIVE [None]
  - CARDIOMEGALY [None]
  - CORONARY ARTERY OCCLUSION [None]
  - DEPRESSION [None]
  - NERVOUSNESS [None]
